FAERS Safety Report 20529201 (Version 2)
Quarter: 2022Q1

REPORT INFORMATION
  Report Type: Spontaneous
  Country: US (occurrence: US)
  Receive Date: 20220228
  Receipt Date: 20220304
  Transmission Date: 20220423
  Serious: No
  Sender: FDA-Public Use
  Company Number: US-BoehringerIngelheim-2022-BI-156568

PATIENT
  Sex: Female

DRUGS (2)
  1. MOBIC [Suspect]
     Active Substance: MELOXICAM
     Indication: Product used for unknown indication
  2. Xeljanz. [Concomitant]
     Indication: Product used for unknown indication

REACTIONS (3)
  - Nerve compression [Unknown]
  - Renal impairment [Unknown]
  - Blood test abnormal [Unknown]
